FAERS Safety Report 5529466-0 (Version None)
Quarter: 2007Q4

REPORT INFORMATION
  Report Type: 
  Country: None (occurrence: None)
  Receive Date: 20071129
  Receipt Date: 20071120
  Transmission Date: 20080405
  Serious: Yes (Hospitalization)
  Sender: FDA-Public Use
  Company Number: US-BAXTER-2007BH009253

PATIENT
  Age: 44 Year
  Sex: Female

DRUGS (3)
  1. LORAZEPAM [Suspect]
     Indication: DEPRESSION
     Dosage: DOSE UNIT:UNKNOWN
     Route: 065
     Dates: end: 19990101
  2. ZYPREXA [Suspect]
     Indication: DEPRESSION
     Route: 065
     Dates: start: 19980401
  3. ZYPREXA [Suspect]
     Dosage: DOSE UNIT:UNKNOWN
     Route: 065
     Dates: start: 19990101

REACTIONS (5)
  - COMA [None]
  - HALLUCINATION, AUDITORY [None]
  - INTENTIONAL OVERDOSE [None]
  - RESPIRATORY FAILURE [None]
  - SUICIDE ATTEMPT [None]
